FAERS Safety Report 9704935 (Version 2)
Quarter: 2013Q4

REPORT INFORMATION
  Report Type: Spontaneous
  Country: JP (occurrence: JP)
  Receive Date: 20131122
  Receipt Date: 20131227
  Transmission Date: 20140711
  Serious: Yes (Other)
  Sender: FDA-Public Use
  Company Number: CHPA2013JP017477

PATIENT
  Sex: Female

DRUGS (1)
  1. TAVEGYL [Suspect]
     Indication: PRURITUS
     Dosage: 2 MG, BID
     Dates: start: 20131107

REACTIONS (1)
  - Urinary retention [Recovered/Resolved]
